FAERS Safety Report 9887497 (Version 1)
Quarter: 2014Q1

REPORT INFORMATION
  Report Type: Spontaneous
  Country: US (occurrence: None)
  Receive Date: 20140207
  Receipt Date: 20140207
  Transmission Date: 20141002
  Serious: Yes (Hospitalization)
  Sender: FDA-Public Use
  Company Number: None

PATIENT
  Age: 64 Year
  Sex: Male
  Weight: 111.7 kg

DRUGS (3)
  1. SPIRONOLACTONE [Suspect]
     Indication: CARDIAC FAILURE CONGESTIVE
     Route: 048
     Dates: start: 20090123, end: 20110120
  2. LISINOPRIL [Suspect]
     Indication: HYPERTENSION
     Route: 048
     Dates: start: 20031130, end: 20110120
  3. LISINOPRIL [Suspect]
     Indication: DIABETES MELLITUS
     Route: 048
     Dates: start: 20031130, end: 20110120

REACTIONS (8)
  - Pain [None]
  - Fatigue [None]
  - Chills [None]
  - Rhinorrhoea [None]
  - Productive cough [None]
  - Vision blurred [None]
  - Renal impairment [None]
  - Dyspnoea exertional [None]
